FAERS Safety Report 6453084-3 (Version None)
Quarter: 2009Q4

REPORT INFORMATION
  Report Type: 
  Country: None (occurrence: None)
  Receive Date: 20091124
  Receipt Date: 20091113
  Transmission Date: 20100525
  Serious: Yes (Death, Other)
  Sender: FDA-Public Use
  Company Number: GB-BAYER-200939329GPV

PATIENT
  Age: 44 Year
  Sex: Male

DRUGS (5)
  1. ALEMTUZUMAB [Suspect]
     Indication: CHRONIC LYMPHOCYTIC LEUKAEMIA RECURRENT
     Dosage: 2 CYCLES, ON DAY 1 OF WEEK 1
     Route: 058
  2. ALEMTUZUMAB [Suspect]
     Dosage: 2 CYCLES, ON DAY 2 OF WEEK 1
     Route: 058
  3. ALEMTUZUMAB [Suspect]
     Dosage: 2 CYCLES, ON DAYS 1, 3 AND 5 OF WEEKS 2-4
     Route: 058
  4. ALEMTUZUMAB [Suspect]
     Dosage: 2 CYCLES, ON DAY 3 OF WEEK 1
     Route: 058
  5. METHYLPREDNISOLONE [Suspect]
     Indication: CHRONIC LYMPHOCYTIC LEUKAEMIA RECURRENT
     Dosage: 2 CYCLES, ON DAYS 1-5 OF WEEK 1
     Route: 042

REACTIONS (7)
  - CHRONIC LYMPHOCYTIC LEUKAEMIA [None]
  - HEPATIC CIRRHOSIS [None]
  - HEPATIC FIBROSIS [None]
  - HEPATIC FUNCTION ABNORMAL [None]
  - HEPATITIS ACUTE [None]
  - HEPATITIS C [None]
  - NEUTROPENIC SEPSIS [None]
